FAERS Safety Report 13839192 (Version 1)
Quarter: 2017Q3

REPORT INFORMATION
  Report Type: Spontaneous
  Country: US (occurrence: US)
  Receive Date: 20170806
  Receipt Date: 20170806
  Transmission Date: 20171127
  Serious: Yes (Disabling)
  Sender: FDA-Public Use
  Company Number: None

PATIENT
  Sex: Female
  Weight: 92.7 kg

DRUGS (5)
  1. MULTIVITAMIN [Concomitant]
     Active Substance: VITAMINS
  2. LEVOTHYROXINE. [Concomitant]
     Active Substance: LEVOTHYROXINE
  3. LEVOFLOXACIN. [Suspect]
     Active Substance: LEVOFLOXACIN
     Indication: COUGH
     Dosage: ?          QUANTITY:10 TABLET(S);?
     Route: 048
     Dates: start: 20161127, end: 20161204
  4. MAGNESIUM [Concomitant]
     Active Substance: MAGNESIUM
  5. IRON [Concomitant]
     Active Substance: IRON

REACTIONS (7)
  - Cough [None]
  - Arthralgia [None]
  - Pain in extremity [None]
  - Connective tissue inflammation [None]
  - Scar [None]
  - Abdominal discomfort [None]
  - Rash [None]

NARRATIVE: CASE EVENT DATE: 20170415
